FAERS Safety Report 5848379-8 (Version None)
Quarter: 2008Q3

REPORT INFORMATION
  Report Type: 
  Country: None (occurrence: None)
  Receive Date: 20080814
  Receipt Date: 20080729
  Transmission Date: 20090109
  Serious: Yes (Death, Congenital Anomaly)
  Sender: FDA-Public Use
  Company Number: 8021262

PATIENT
  Age: 6 Month
  Sex: Male

DRUGS (5)
  1. PREDNISOLONE [Suspect]
     Indication: ROSACEA
     Dosage: 35 MG /D TRP
     Route: 064
  2. PREDNISOLONE [Suspect]
     Indication: ROSACEA
     Dosage: 5 MG 1/2W TRP
     Route: 064
  3. PREDNISOLONE [Suspect]
     Indication: ROSACEA
     Dosage: 20 MG /D TRP
     Route: 064
  4. ERYTHROMYCIN [Suspect]
     Indication: ROSACEA
     Dosage: 500 MG 3/D TRP
     Route: 064
  5. INSULIN [Suspect]
     Dosage: TRP
     Route: 064

REACTIONS (5)
  - CAESAREAN SECTION [None]
  - FOETAL ARRHYTHMIA [None]
  - INTRA-UTERINE DEATH [None]
  - MATERNAL DRUGS AFFECTING FOETUS [None]
  - OLIGOHYDRAMNIOS [None]
